FAERS Safety Report 9235785 (Version 3)
Quarter: 2013Q3

REPORT INFORMATION
  Report Type: Report from Study
  Country: IT (occurrence: IT)
  Receive Date: 20130417
  Receipt Date: 20130920
  Transmission Date: 20140515
  Serious: Yes (Death, Hospitalization)
  Sender: FDA-Public Use
  Company Number: PHHO2013IT005161

PATIENT
  Sex: 0

DRUGS (7)
  1. AFINITOR [Suspect]
     Indication: BREAST CANCER METASTATIC
     Dosage: 10 MG, QD
     Route: 048
     Dates: start: 20130311, end: 20130312
  2. AFINITOR [Suspect]
     Dosage: 10 MG, QD
     Route: 048
     Dates: start: 20130314, end: 20130317
  3. EXEMESTANE [Suspect]
     Indication: BREAST CANCER METASTATIC
     Dosage: 25 MG, QD
     Route: 048
     Dates: start: 20130311, end: 201303
  4. EXEMESTANE [Suspect]
     Dosage: 25 MG, QD
     Route: 048
  5. ENOXAPARIN [Concomitant]
     Indication: OEDEMA PERIPHERAL
     Dosage: 6000 IU, QD
     Dates: start: 201303, end: 201303
  6. LANSOPRAZOLE [Concomitant]
     Indication: GASTRITIS PROPHYLAXIS
     Dosage: 300 MG, QD
  7. LORMETAZEPAM [Concomitant]
     Indication: INSOMNIA
     Dosage: UNK
     Dates: start: 201303

REACTIONS (3)
  - Death [Fatal]
  - Somnolence [Unknown]
  - Fatigue [Unknown]
